FAERS Safety Report 26090570 (Version 2)
Quarter: 2025Q4

REPORT INFORMATION
  Report Type: Spontaneous
  Country: CA (occurrence: CA)
  Receive Date: 20251126
  Receipt Date: 20251208
  Transmission Date: 20260118
  Serious: Yes (Death, Other)
  Sender: AUROBINDO
  Company Number: CA-AUROBINDO-AUR-APL-2025-059313

PATIENT
  Age: 66 Year
  Sex: Female

DRUGS (3)
  1. CLOPIDOGREL [Suspect]
     Active Substance: CLOPIDOGREL BISULFATE
     Indication: Giant cell arteritis
     Dosage: 75 MILLIGRAM, EVERY OTHER DAY
     Route: 065
  2. ASPIRIN [Suspect]
     Active Substance: ASPIRIN
     Indication: Giant cell arteritis
     Dosage: 81 MILLIGRAM, EVERY OTHER DAY
     Route: 065
  3. PREDNISONE [Suspect]
     Active Substance: PREDNISONE
     Indication: Giant cell arteritis
     Dosage: UNK

REACTIONS (3)
  - Depressed level of consciousness [Fatal]
  - Cerebral infarction [Fatal]
  - Therapy non-responder [Fatal]
